FAERS Safety Report 8027174-8 (Version None)
Quarter: 2012Q1

REPORT INFORMATION
  Report Type: 
  Country: None (occurrence: None)
  Receive Date: 20120106
  Receipt Date: 20111229
  Transmission Date: 20120608
  Serious: Yes (Hospitalization, Other)
  Sender: FDA-Public Use
  Company Number: US-US-EMD SERONO, INC.-7060735

PATIENT
  Sex: Female

DRUGS (5)
  1. REBIF [Suspect]
     Indication: MULTIPLE SCLEROSIS
     Route: 058
     Dates: start: 20090727
  2. PHENAZOPYRIDINE HCL TAB [Concomitant]
     Indication: POLLAKIURIA
  3. UNSPECIFIED ANTIBIOTICS [Concomitant]
     Indication: POLLAKIURIA
  4. AMOXICILLIN [Concomitant]
     Indication: POLLAKIURIA
  5. IBUPROFEN [Concomitant]
     Indication: PREMEDICATION

REACTIONS (4)
  - TRIGEMINAL NEURALGIA [None]
  - TORTICOLLIS [None]
  - HEADACHE [None]
  - MULTIPLE SCLEROSIS RELAPSE [None]
